FAERS Safety Report 22277340 (Version 1)
Quarter: 2023Q2

REPORT INFORMATION
  Report Type: Spontaneous
  Country: US (occurrence: US)
  Receive Date: 20230503
  Receipt Date: 20230503
  Transmission Date: 20230722
  Serious: Yes (Other)
  Sender: FDA-Public Use
  Company Number: US-UCBSA-2023021209

PATIENT
  Age: 30 Year
  Sex: Male

DRUGS (7)
  1. MIDAZOLAM [Suspect]
     Active Substance: MIDAZOLAM
     Indication: Sedation
     Dosage: 10 MILLIGRAM
     Route: 042
  2. MIDAZOLAM [Suspect]
     Active Substance: MIDAZOLAM
     Indication: Off label use
  3. DROPERIDOL [Concomitant]
     Active Substance: DROPERIDOL
     Indication: Sedation
     Dosage: 5 MILLIGRAM
     Route: 042
  4. KETAMINE [Concomitant]
     Active Substance: KETAMINE
     Indication: Sedation
     Dosage: 300 MILLIGRAM
     Route: 042
  5. HYDROMORPHONE [Concomitant]
     Active Substance: HYDROMORPHONE
     Indication: Sedation
     Route: 042
  6. PROPOFOL [Concomitant]
     Active Substance: PROPOFOL
     Indication: Sedation
     Route: 042
  7. NALOXONE [Concomitant]
     Active Substance: NALOXONE
     Indication: Hypopnoea
     Dosage: 0.5 MILLIGRAM
     Route: 042

REACTIONS (3)
  - Apnoea [Unknown]
  - Mechanical ventilation [Unknown]
  - Off label use [Unknown]
